FAERS Safety Report 5782409-7 (Version None)
Quarter: 2008Q2

REPORT INFORMATION
  Report Type: 
  Country: None (occurrence: None)
  Receive Date: 20080623
  Receipt Date: 20080522
  Transmission Date: 20081010
  Serious: Yes (Death, Other)
  Sender: FDA-Public Use
  Company Number: PHHY2008ES08447

PATIENT
  Age: 62 Year
  Sex: Male

DRUGS (6)
  1. ZOMETA [Suspect]
     Dosage: 4 MG, QMO
     Route: 042
     Dates: start: 20070101
  2. DEXAMETHASONE TAB [Suspect]
     Indication: MULTIPLE MYELOMA
     Dates: start: 20070901
  3. THALIDOMIDE [Suspect]
     Indication: MULTIPLE MYELOMA
     Dosage: 50 MG, QD
     Route: 048
     Dates: start: 20070911, end: 20070924
  4. THALIDOMIDE [Suspect]
     Dosage: 100 MG, QD
     Route: 048
     Dates: start: 20070925, end: 20071009
  5. THALIDOMIDE [Suspect]
     Dosage: 200 MG, QD
     Route: 048
     Dates: start: 20071009
  6. CLEXANE [Suspect]
     Indication: MULTIPLE MYELOMA
     Dosage: 40 MG, QD
     Route: 058
     Dates: start: 20070101

REACTIONS (6)
  - CEREBRAL THROMBOSIS [None]
  - INSOMNIA [None]
  - ISCHAEMIC STROKE [None]
  - NERVOUSNESS [None]
  - PARAESTHESIA [None]
  - RESTLESSNESS [None]
